FAERS Safety Report 6847349-0 (Version None)
Quarter: 2010Q3

REPORT INFORMATION
  Report Type: 
  Country: None (occurrence: None)
  Receive Date: 20100716
  Receipt Date: 20100706
  Transmission Date: 20110219
  Serious: Yes (Other)
  Sender: FDA-Public Use
  Company Number: US-BAYER-201027080NA

PATIENT
  Age: 49 Year
  Sex: Female

DRUGS (1)
  1. MIRENA [Suspect]
     Indication: MENOMETRORRHAGIA
     Dosage: FREQUENCY CONTINUOUS
     Route: 015
     Dates: start: 20100615

REACTIONS (8)
  - ABDOMINAL PAIN [None]
  - ARTHRALGIA [None]
  - HEADACHE [None]
  - NAUSEA [None]
  - PRESYNCOPE [None]
  - SLEEP DISORDER [None]
  - SYNCOPE [None]
  - WEIGHT INCREASED [None]
